FAERS Safety Report 23054683 (Version 1)
Quarter: 2023Q4

REPORT INFORMATION
  Report Type: Report from Study
  Country: US (occurrence: US)
  Receive Date: 20231011
  Receipt Date: 20231011
  Transmission Date: 20240110
  Serious: Yes (Hospitalization)
  Sender: FDA-Public Use
  Company Number: US-VERTEX PHARMACEUTICALS-2023-013172

PATIENT
  Sex: Male

DRUGS (1)
  1. TRIKAFTA [Suspect]
     Active Substance: ELEXACAFTOR\IVACAFTOR\TEZACAFTOR
     Indication: Cystic fibrosis
     Dosage: 2  TABS AM AND 1 TAB PM
     Route: 048
     Dates: start: 20210901

REACTIONS (2)
  - Intestinal obstruction [Not Recovered/Not Resolved]
  - Hypersomnia [Not Recovered/Not Resolved]
